FAERS Safety Report 10039643 (Version 1)
Quarter: 2014Q1

REPORT INFORMATION
  Report Type: Spontaneous
  Country: GB (occurrence: GB)
  Receive Date: 20140326
  Receipt Date: 20140326
  Transmission Date: 20141002
  Serious: Yes (Other)
  Sender: FDA-Public Use
  Company Number: GB-JNJFOC-20140308381

PATIENT
  Sex: 0

DRUGS (7)
  1. DOXORUBICIN HYDROCHLORIDE [Suspect]
     Indication: B-CELL LYMPHOMA
     Route: 042
  2. CYCLOPHOSPHAMIDE [Suspect]
     Indication: B-CELL LYMPHOMA
     Route: 042
  3. VINCRISTINE [Suspect]
     Indication: B-CELL LYMPHOMA
     Dosage: MAXIMUM 2 MG
     Route: 042
  4. PREDNISONE [Suspect]
     Indication: B-CELL LYMPHOMA
     Dosage: 100 MG FOR CHOP AND 40 MG/M2 FOR CVP REGIME PER DAY FOR 5 DAYS
     Route: 042
  5. PREDNISONE [Suspect]
     Indication: B-CELL LYMPHOMA
     Dosage: 100 MG FOR CHOP AND 40 MG/M2 FOR CVP REGIME PER DAY FOR 5 DAYS
     Route: 048
  6. RITUXIMAB [Suspect]
     Indication: B-CELL LYMPHOMA
     Dosage: DAY 0 OF CYCLE 2 AND DAY 1 OF CYCLES 3-8
     Route: 058
  7. RITUXIMAB [Suspect]
     Indication: B-CELL LYMPHOMA
     Dosage: ON DAY 0, 1, OR 2 OF CYCLE 1 AND DAY 1 OF CYCLES 2-8
     Route: 042

REACTIONS (35)
  - Neutropenia [Unknown]
  - Vomiting [Unknown]
  - Diarrhoea [Unknown]
  - Leukopenia [Unknown]
  - Febrile neutropenia [Unknown]
  - Pneumonia [Unknown]
  - Sepsis [Unknown]
  - Vertigo [Unknown]
  - Follicle centre lymphoma, follicular grade I, II, III refractory [Unknown]
  - Hepatic enzyme abnormal [Unknown]
  - Tumour lysis syndrome [Unknown]
  - Urine output decreased [Unknown]
  - Injection site reaction [Unknown]
  - Pruritus [Unknown]
  - Chills [Unknown]
  - Asthenia [Unknown]
  - Nausea [Unknown]
  - Constipation [Unknown]
  - Abdominal pain [Unknown]
  - Dyspepsia [Unknown]
  - Pyrexia [Unknown]
  - Mucosal inflammation [Unknown]
  - Injection site erythema [Unknown]
  - Anaemia [Unknown]
  - Paraesthesia [Unknown]
  - Headache [Unknown]
  - Neuropathy peripheral [Unknown]
  - Alopecia [Unknown]
  - Erythema [Unknown]
  - Rash [Unknown]
  - Myalgia [Unknown]
  - Cough [Unknown]
  - Dyspnoea [Unknown]
  - Insomnia [Unknown]
  - Dry mouth [Unknown]
